FAERS Safety Report 10088828 (Version 1)
Quarter: 2014Q2

REPORT INFORMATION
  Report Type: Spontaneous
  Country: US (occurrence: US)
  Receive Date: 20140421
  Receipt Date: 20140421
  Transmission Date: 20141212
  Serious: Yes (Other)
  Sender: FDA-Public Use
  Company Number: US-JNJFOC-20140406709

PATIENT
  Sex: Female
  Weight: 104.33 kg

DRUGS (6)
  1. DURAGESIC [Suspect]
     Indication: PAIN
     Route: 062
  2. LORTAB [Concomitant]
     Indication: BREAKTHROUGH PAIN
     Dosage: 1-2 TABLETS EVERY 6-8 HOURS
     Route: 048
  3. METAXALONE [Concomitant]
     Indication: MUSCLE RELAXANT THERAPY
     Dosage: EVERY 6-8 HOURS
     Route: 048
  4. PANTOPRAZOLE [Concomitant]
     Indication: ULCER
     Dosage: 1-2 TIMES DAILY AS NEEDED
     Route: 048
  5. LISINOPRIL [Concomitant]
     Indication: BLOOD PRESSURE
     Route: 048
  6. DOXYLAMINE [Concomitant]
     Indication: ABNORMAL FAECES
     Dosage: 17-21.5MG DAILY NIGHT
     Route: 048

REACTIONS (10)
  - Nerve injury [Unknown]
  - Gastric ulcer [Unknown]
  - Neuralgia [Unknown]
  - Product adhesion issue [Unknown]
  - Dysphagia [Not Recovered/Not Resolved]
  - Dehydration [Not Recovered/Not Resolved]
  - Hyperhidrosis [Not Recovered/Not Resolved]
  - Drug dose omission [Recovered/Resolved]
  - Breakthrough pain [Unknown]
  - Dermatitis contact [Unknown]
